FAERS Safety Report 11343357 (Version 3)
Quarter: 2015Q4

REPORT INFORMATION
  Report Type: Spontaneous
  Country: US (occurrence: US)
  Receive Date: 20150806
  Receipt Date: 20151119
  Transmission Date: 20160304
  Serious: Yes (Other)
  Sender: FDA-Public Use
  Company Number: US-ROCHE-1618316

PATIENT
  Sex: Male
  Weight: 106.69 kg

DRUGS (1)
  1. ESBRIET [Suspect]
     Active Substance: PIRFENIDONE
     Indication: IDIOPATHIC PULMONARY FIBROSIS
     Dosage: 3 CAPSULES OF 267MG 3 TIMES A DAY
     Route: 048
     Dates: start: 20150630

REACTIONS (4)
  - Nasal congestion [Unknown]
  - Pneumonia [Unknown]
  - Cough [Unknown]
  - Sinusitis [Unknown]
